FAERS Safety Report 7412254-8 (Version None)
Quarter: 2011Q2

REPORT INFORMATION
  Report Type: 
  Country: None (occurrence: None)
  Receive Date: 20110413
  Receipt Date: 20110408
  Transmission Date: 20111010
  Serious: Yes (Other)
  Sender: FDA-Public Use
  Company Number: BR-ROCHE-758390

PATIENT
  Age: 70 Year
  Sex: Female
  Weight: 80 kg

DRUGS (6)
  1. RIVOTRIL [Concomitant]
  2. CORTISONE [Concomitant]
     Indication: PURPURA
  3. XENICAL [Suspect]
     Dosage: DOSE: 120 MG/CAO
     Route: 065
     Dates: start: 20080301
  4. MICARDIS [Concomitant]
  5. PURAN T4 [Concomitant]
     Indication: HYPOTHYROIDISM
  6. SERTRALINE [Concomitant]

REACTIONS (1)
  - THROMBOSIS [None]
